FAERS Safety Report 8598825-4 (Version None)
Quarter: 2012Q3

REPORT INFORMATION
  Report Type: 
  Country: None (occurrence: None)
  Receive Date: 20120816
  Receipt Date: 20120813
  Transmission Date: 20120928
  Serious: Yes (Other)
  Sender: FDA-Public Use
  Company Number: GB-GLAXOSMITHKLINE-B0678781B

PATIENT
  Sex: Male
  Weight: 53.3 kg

DRUGS (10)
  1. PREDNISOLONE [Suspect]
     Indication: MULTIPLE MYELOMA
     Dosage: 125MG PER DAY
     Dates: start: 20100614
  2. ACYCLOVIR [Concomitant]
     Indication: PROPHYLAXIS
     Dosage: 800MG TWICE PER DAY
     Route: 048
     Dates: start: 20100521
  3. THALIDOMIDE [Suspect]
     Indication: MULTIPLE MYELOMA
     Dosage: 50MG PER DAY
     Route: 048
     Dates: start: 20100614
  4. DOMPERIDONE [Concomitant]
     Indication: PROPHYLAXIS OF NAUSEA AND VOMITING
     Dosage: 30MG THREE TIMES PER DAY
     Route: 048
     Dates: start: 20110313
  5. ZOLEDRONOC ACID [Concomitant]
     Indication: PROPHYLAXIS
     Route: 042
     Dates: start: 20100810
  6. MELPHALAN HYDROCHLORIDE [Suspect]
     Indication: MULTIPLE MYELOMA
     Dosage: 12MG PER DAY
     Dates: start: 20100614
  7. OMEPRAZOLE [Concomitant]
     Indication: PROPHYLAXIS
     Dosage: 20MG PER DAY
     Dates: start: 20100726
  8. ACETAMINOPHEN [Concomitant]
     Indication: BACK PAIN
     Dosage: 4G FOUR TIMES PER DAY
     Route: 048
     Dates: start: 20100101
  9. MORPHINE SULFATE [Concomitant]
     Indication: BACK PAIN
     Dosage: 60MG PER DAY
     Route: 048
     Dates: start: 20100620
  10. ORAMORPH SR [Concomitant]
     Indication: BACK PAIN
     Route: 048
     Dates: start: 20100518

REACTIONS (1)
  - BREAST CANCER METASTATIC [None]
